FAERS Safety Report 13575925 (Version 1)
Quarter: 2017Q2

REPORT INFORMATION
  Report Type: Spontaneous
  Country: US (occurrence: US)
  Receive Date: 20170523
  Receipt Date: 20170523
  Transmission Date: 20170830
  Serious: Yes (Disabling, Other)
  Sender: FDA-Public Use
  Company Number: None

PATIENT
  Age: 32 Year
  Sex: Female
  Weight: 85.95 kg

DRUGS (6)
  1. PERPHENAZINE. [Concomitant]
     Active Substance: PERPHENAZINE
  2. ESCITALOPRAM [Concomitant]
     Active Substance: ESCITALOPRAM OXALATE
  3. COGENTIN [Concomitant]
     Active Substance: BENZTROPINE MESYLATE
  4. CLONAZEPAM. [Concomitant]
     Active Substance: CLONAZEPAM
  5. ATENOLOL. [Concomitant]
     Active Substance: ATENOLOL
  6. PROMETHAZINE [Suspect]
     Active Substance: PROMETHAZINE\PROMETHAZINE HYDROCHLORIDE
     Indication: NAUSEA
     Dosage: ?          QUANTITY:1 TABLET(S); EVERY 6 HOURS ORAL?
     Route: 048
     Dates: start: 20170417, end: 20170430

REACTIONS (3)
  - Tachycardia [None]
  - Palpitations [None]
  - Arrhythmia [None]

NARRATIVE: CASE EVENT DATE: 20170421
